FAERS Safety Report 4860264-7 (Version None)
Quarter: 2005Q4

REPORT INFORMATION
  Report Type: 
  Country: None (occurrence: None)
  Receive Date: 20051219
  Receipt Date: 20051205
  Transmission Date: 20060501
  Serious: Yes (Other)
  Sender: FDA-Public Use
  Company Number: US-KINGPHARMUSA00001-K200501577

PATIENT
  Age: 24 Year
  Sex: Male
  Weight: 95 kg

DRUGS (1)
  1. SEPTRA [Suspect]
     Indication: ACNE
     Dosage: UNK, QD
     Route: 048
     Dates: start: 20031124, end: 20050217

REACTIONS (10)
  - ALOPECIA [None]
  - APHTHOUS STOMATITIS [None]
  - DYSPHAGIA [None]
  - LYMPHOCYTE COUNT DECREASED [None]
  - MONOCYTE COUNT INCREASED [None]
  - OILY SKIN [None]
  - PAIN OF SKIN [None]
  - PLATELET COUNT DECREASED [None]
  - PRURITUS [None]
  - SENSATION OF FOREIGN BODY [None]
